FAERS Safety Report 21884923 (Version 1)
Quarter: 2023Q1

REPORT INFORMATION
  Report Type: Spontaneous
  Country: US (occurrence: US)
  Receive Date: 20230119
  Receipt Date: 20230119
  Transmission Date: 20230418
  Serious: No
  Sender: FDA-Public Use
  Company Number: US-SUN PHARMACEUTICAL INDUSTRIES LTD-2022R1-343726

PATIENT
  Sex: Male

DRUGS (2)
  1. LEVULAN KERASTICK [Suspect]
     Active Substance: AMINOLEVULINIC ACID HYDROCHLORIDE
     Indication: Actinic keratosis
     Dosage: UNK UNK, OD
     Route: 061
  2. DEVICE [Suspect]
     Active Substance: DEVICE
     Indication: Actinic keratosis
     Dosage: UNK UNK, OD
     Route: 065

REACTIONS (1)
  - Wrong technique in product usage process [Unknown]
